FAERS Safety Report 5457747-8 (Version None)
Quarter: 2007Q3

REPORT INFORMATION
  Report Type: 
  Country: None (occurrence: None)
  Receive Date: 20070918
  Receipt Date: 20070907
  Transmission Date: 20080115
  Serious: Yes (Other)
  Sender: FDA-Public Use
  Company Number: US-PFIZER INC-2007075501

PATIENT
  Sex: Female
  Weight: 77.1 kg

DRUGS (2)
  1. LYRICA [Suspect]
     Indication: FIBROMYALGIA
     Route: 048
     Dates: start: 20070228, end: 20070901
  2. DICYCLOMINE [Concomitant]
     Route: 048

REACTIONS (4)
  - DYSPNOEA [None]
  - IRRITABLE BOWEL SYNDROME [None]
  - TACHYCARDIA [None]
  - WEIGHT INCREASED [None]
